FAERS Safety Report 7452505-7 (Version None)
Quarter: 2011Q2

REPORT INFORMATION
  Report Type: 
  Country: None (occurrence: None)
  Receive Date: 20110425
  Receipt Date: 20110410
  Transmission Date: 20111010
  Serious: Yes (Other)
  Sender: FDA-Public Use
  Company Number: 019781

PATIENT
  Sex: Male
  Weight: 3.7 kg

DRUGS (5)
  1. FOLIC ACID [Concomitant]
  2. FROVA [Concomitant]
  3. PRENATAL VITAMINS /01549301/ [Concomitant]
  4. KEPPRA [Suspect]
     Indication: EPILEPSY
     Dosage: (2000 MG TRANSPLACENTAL), (2500 MG TRANSPLACENTAL)   (2000 MG TRANSPLACENTAL), (2500 MG TRANSPLACENT
     Route: 064
     Dates: start: 20100101
  5. KEPPRA [Suspect]
     Indication: EPILEPSY
     Dosage: (2000 MG TRANSPLACENTAL), (2500 MG TRANSPLACENTAL)   (2000 MG TRANSPLACENTAL), (2500 MG TRANSPLACENT
     Route: 064
     Dates: start: 20100101, end: 20100827

REACTIONS (7)
  - MACROCEPHALY [None]
  - MATERNAL DRUGS AFFECTING FOETUS [None]
  - PLACENTAL INFARCTION [None]
  - FOETAL HEART RATE DECELERATION [None]
  - CAESAREAN SECTION [None]
  - AMNIOTIC FLUID VOLUME DECREASED [None]
  - NEONATAL ASPIRATION [None]
